FAERS Safety Report 8385168-7 (Version None)
Quarter: 2012Q2

REPORT INFORMATION
  Report Type: 
  Country: None (occurrence: None)
  Receive Date: 20120525
  Receipt Date: 20120522
  Transmission Date: 20120825
  Serious: Yes (Other)
  Sender: FDA-Public Use
  Company Number: US-AMGEN-USASP2012018020

PATIENT
  Age: 47 Year
  Sex: Male

DRUGS (2)
  1. ENBREL [Suspect]
     Indication: PSORIASIS
  2. ENBREL [Suspect]
     Indication: PSORIATIC ARTHROPATHY
     Dosage: 50 MG, QWK
     Route: 058
     Dates: start: 20110401, end: 20120301

REACTIONS (12)
  - AGITATION [None]
  - ADVERSE DRUG REACTION [None]
  - WITHDRAWAL SYNDROME [None]
  - HOSTILITY [None]
  - FATIGUE [None]
  - MENTAL DISORDER [None]
  - RESTLESSNESS [None]
  - AGGRESSION [None]
  - TREMOR [None]
  - DRUG DEPENDENCE [None]
  - INSOMNIA [None]
  - HYPOAESTHESIA [None]
